FAERS Safety Report 20481193 (Version 1)
Quarter: 2022Q1

REPORT INFORMATION
  Report Type: Spontaneous
  Country: JP (occurrence: JP)
  Receive Date: 20220216
  Receipt Date: 20220216
  Transmission Date: 20220424
  Serious: Yes (Hospitalization, Other)
  Sender: FDA-Public Use
  Company Number: JP-002147023-NVSJ2022JP002662

PATIENT

DRUGS (1)
  1. RUXOLITINIB [Suspect]
     Active Substance: RUXOLITINIB
     Indication: Myeloproliferative neoplasm
     Dosage: UNK
     Route: 048

REACTIONS (5)
  - Gait disturbance [Unknown]
  - Malignant neoplasm progression [Unknown]
  - Myeloproliferative neoplasm [Unknown]
  - Angiopathy [Unknown]
  - Ventricular tachycardia [Recovered/Resolved]
